FAERS Safety Report 8328023-0 (Version None)
Quarter: 2012Q2

REPORT INFORMATION
  Report Type: 
  Country: None (occurrence: None)
  Receive Date: 20120502
  Receipt Date: 20120426
  Transmission Date: 20120825
  Serious: Yes (Death)
  Sender: FDA-Public Use
  Company Number: FR-BRISTOL-MYERS SQUIBB COMPANY-16554339

PATIENT
  Age: 85 Year
  Sex: Male

DRUGS (2)
  1. COUMADIN [Suspect]
     Indication: EMBOLIC STROKE
     Route: 048
     Dates: start: 20120125
  2. LOVENOX [Suspect]
     Indication: EMBOLIC STROKE
     Route: 058
     Dates: start: 20120124, end: 20120131

REACTIONS (2)
  - HYPOVOLAEMIC SHOCK [None]
  - INTRA-ABDOMINAL HAEMATOMA [None]
